FAERS Safety Report 25508320 (Version 1)
Quarter: 2025Q3

REPORT INFORMATION
  Report Type: Spontaneous
  Country: CN (occurrence: CN)
  Receive Date: 20250703
  Receipt Date: 20250703
  Transmission Date: 20251021
  Serious: Yes (Other)
  Sender: ROCHE
  Company Number: CN-ROCHE-10000326922

PATIENT
  Age: 38 Year
  Sex: Female

DRUGS (15)
  1. HERCEPTIN [Suspect]
     Active Substance: TRASTUZUMAB
     Indication: Neoplasm malignant
     Route: 042
     Dates: start: 20250616, end: 20250616
  2. HERCEPTIN [Suspect]
     Active Substance: TRASTUZUMAB
     Indication: Breast cancer
  3. HERCEPTIN [Suspect]
     Active Substance: TRASTUZUMAB
     Indication: Uterine mass
  4. HERCEPTIN [Suspect]
     Active Substance: TRASTUZUMAB
     Indication: Tumour marker increased
  5. CARBOPLATIN [Suspect]
     Active Substance: CARBOPLATIN
     Indication: Neoplasm malignant
     Route: 042
     Dates: start: 20250616, end: 20250616
  6. CARBOPLATIN [Suspect]
     Active Substance: CARBOPLATIN
     Indication: Breast cancer
  7. CARBOPLATIN [Suspect]
     Active Substance: CARBOPLATIN
     Indication: Uterine mass
  8. CARBOPLATIN [Suspect]
     Active Substance: CARBOPLATIN
     Indication: Tumour marker increased
  9. PACLITAXEL [Suspect]
     Active Substance: PACLITAXEL
     Indication: Neoplasm malignant
     Route: 042
     Dates: start: 20250616, end: 20250616
  10. PACLITAXEL [Suspect]
     Active Substance: PACLITAXEL
     Indication: Breast cancer
  11. PACLITAXEL [Suspect]
     Active Substance: PACLITAXEL
     Indication: Uterine mass
  12. PACLITAXEL [Suspect]
     Active Substance: PACLITAXEL
     Indication: Tumour marker increased
  13. SODIUM CHLORIDE [Concomitant]
     Active Substance: SODIUM CHLORIDE
     Route: 042
     Dates: start: 20250616, end: 20250616
  14. SODIUM CHLORIDE [Concomitant]
     Active Substance: SODIUM CHLORIDE
     Route: 042
     Dates: start: 20250616, end: 20250616
  15. DEXTROSE [Concomitant]
     Active Substance: DEXTROSE MONOHYDRATE
     Route: 042
     Dates: start: 20250616, end: 20250616

REACTIONS (1)
  - Myelosuppression [Unknown]

NARRATIVE: CASE EVENT DATE: 20250628
